FAERS Safety Report 6256349-3 (Version None)
Quarter: 2009Q3

REPORT INFORMATION
  Report Type: 
  Country: None (occurrence: None)
  Receive Date: 20090706
  Receipt Date: 20090623
  Transmission Date: 20100115
  Serious: Yes (Other)
  Sender: FDA-Public Use
  Company Number: US-ROCHE-641359

PATIENT
  Age: 23 Year
  Sex: Female

DRUGS (2)
  1. RIBAVIRIN [Suspect]
     Indication: HEPATITIS C
     Route: 048
     Dates: end: 20090116
  2. PEG-INTERFERON ALFA NOS [Suspect]
     Indication: HEPATITIS C
     Route: 058
     Dates: end: 20090116

REACTIONS (1)
  - ABORTION SPONTANEOUS [None]
